FAERS Safety Report 4656638-X (Version None)
Quarter: 2005Q2

REPORT INFORMATION
  Report Type: 
  Country: None (occurrence: None)
  Receive Date: 20050506
  Receipt Date: 20050425
  Transmission Date: 20051028
  Serious: Yes (Death, Other)
  Sender: FDA-Public Use
  Company Number: 087-20785-05050029

PATIENT
  Age: 57 Year
  Sex: Female

DRUGS (1)
  1. THALIDOMIDE (THALIDOMIDE) (CAPSULES) [Suspect]
     Indication: MULTIPLE MYELOMA
     Dosage: 400 MG, QD, ORAL
     Route: 048
     Dates: start: 20000501

REACTIONS (5)
  - CARDIAC FAILURE [None]
  - DISEASE PROGRESSION [None]
  - PULMONARY HYPERTENSION [None]
  - SYNCOPE [None]
  - TRICUSPID VALVE INCOMPETENCE [None]
